FAERS Safety Report 6133166-6 (Version None)
Quarter: 2009Q1

REPORT INFORMATION
  Report Type: 
  Country: None (occurrence: None)
  Receive Date: 20090324
  Receipt Date: 20090311
  Transmission Date: 20090719
  Serious: Yes (Hospitalization)
  Sender: FDA-Public Use
  Company Number: POMP-1000221

PATIENT
  Age: 6 Week
  Sex: Female
  Weight: 3.6 kg

DRUGS (1)
  1. MYOZYME [Suspect]
     Indication: GLYCOGEN STORAGE DISEASE TYPE II
     Dosage: 20 MG/KG, Q2W, INTRAVENOUS
     Route: 042
     Dates: start: 20080519

REACTIONS (6)
  - BLOOD IMMUNOGLOBULIN G INCREASED [None]
  - CENTRAL VENOUS CATHETERISATION [None]
  - OXYGEN SATURATION DECREASED [None]
  - POST PROCEDURAL COMPLICATION [None]
  - POST PROCEDURAL DIARRHOEA [None]
  - PROCEDURAL VOMITING [None]
